FAERS Safety Report 9769415 (Version 2)
Quarter: 2014Q1

REPORT INFORMATION
  Report Type: Spontaneous
  Country: US (occurrence: US)
  Receive Date: 20131218
  Receipt Date: 20140128
  Transmission Date: 20141002
  Serious: No
  Sender: FDA-Public Use
  Company Number: US-009507513-1312USA007274

PATIENT
  Age: 25 Year
  Sex: Female
  Weight: 59.86 kg

DRUGS (1)
  1. NEXPLANON [Suspect]
     Indication: CONTRACEPTION
     Dosage: 1 STANDARD PACKAGE OF PF APPLI OF 1
     Route: 059
     Dates: start: 201206, end: 20131213

REACTIONS (5)
  - Device kink [Recovered/Resolved]
  - Feeling abnormal [Unknown]
  - Product quality issue [Unknown]
  - Limb discomfort [Recovered/Resolved]
  - Device breakage [Recovered/Resolved]
